FAERS Safety Report 8523378-6 (Version None)
Quarter: 2012Q3

REPORT INFORMATION
  Report Type: 
  Country: None (occurrence: None)
  Receive Date: 20120713
  Receipt Date: 20120713
  Transmission Date: 20120928
  Serious: Yes (Hospitalization)
  Sender: FDA-Public Use
  Company Number: None

PATIENT
  Age: 68 Year
  Sex: Male
  Weight: 93.6 kg

DRUGS (2)
  1. ETOPOSIDE [Suspect]
     Dosage: 177 MG
     Dates: start: 20111031, end: 20111102
  2. CISPLATIN [Suspect]
     Dosage: 177 MG ONCE IV
     Route: 042
     Dates: start: 20111031, end: 20111031

REACTIONS (1)
  - FEBRILE NEUTROPENIA [None]
